FAERS Safety Report 5481005-9 (Version None)
Quarter: 2007Q4

REPORT INFORMATION
  Report Type: 
  Country: None (occurrence: None)
  Receive Date: 20071009
  Receipt Date: 20070927
  Transmission Date: 20080405
  Serious: Yes (Life-Threatening, Hospitalization, Disabling)
  Sender: FDA-Public Use
  Company Number: DK-PFIZER INC-2007075592

PATIENT
  Sex: Male
  Weight: 80 kg

DRUGS (5)
  1. ZOLOFT [Suspect]
     Indication: DEPRESSION
     Route: 048
     Dates: start: 20010926, end: 20070608
  2. ANTIHYPERTENSIVES [Concomitant]
  3. AMLODIPIN ^ORIFARM^ [Concomitant]
  4. CRESTOR [Concomitant]
     Dates: start: 20070522, end: 20070608
  5. SIMVASTATIN [Concomitant]
     Dates: start: 20070416, end: 20070521

REACTIONS (1)
  - PANCREATIC ABSCESS [None]
